FAERS Safety Report 21216955 (Version 3)
Quarter: 2022Q4

REPORT INFORMATION
  Report Type: Report from Study
  Country: TH (occurrence: TH)
  Receive Date: 20220816
  Receipt Date: 20221012
  Transmission Date: 20230112
  Serious: Yes (Hospitalization)
  Sender: FDA-Public Use
  Company Number: TH-EXELIXIS-CABO-22052270

PATIENT
  Sex: Male

DRUGS (1)
  1. CABOMETYX [Suspect]
     Active Substance: CABOZANTINIB S-MALATE
     Indication: Renal cell carcinoma
     Dosage: 60 MG, QD
     Route: 048
     Dates: start: 20220429, end: 20220522

REACTIONS (6)
  - Central nervous system infection [Recovering/Resolving]
  - Spinal cord infection [Unknown]
  - Decubitus ulcer [Unknown]
  - General physical health deterioration [Unknown]
  - Stomatitis [Unknown]
  - Decreased appetite [Unknown]
